FAERS Safety Report 7067619-3 (Version None)
Quarter: 2010Q4

REPORT INFORMATION
  Report Type: 
  Country: None (occurrence: None)
  Receive Date: 20101020
  Receipt Date: 20101012
  Transmission Date: 20110411
  Serious: Yes (Hospitalization)
  Sender: FDA-Public Use
  Company Number: 2010MA003543

PATIENT
  Age: 48 Year
  Sex: Female

DRUGS (7)
  1. ALPRAZOLAM [Suspect]
     Indication: ANXIETY
     Dosage: 2 MG;PRN;ORAL
     Route: 048
     Dates: start: 20050101, end: 20100925
  2. ALPRAZOLAM [Suspect]
     Indication: INSOMNIA
     Dosage: 2 MG;PRN;ORAL
     Route: 048
     Dates: start: 20050101, end: 20100925
  3. CYMBALTA [Concomitant]
  4. ADDERALL 10 [Concomitant]
  5. ENABLEX [Concomitant]
  6. NEXIUM [Concomitant]
  7. PREV MEDS [Concomitant]

REACTIONS (1)
  - ACCIDENTAL OVERDOSE [None]
